FAERS Safety Report 14142269 (Version 1)
Quarter: 2017Q4

REPORT INFORMATION
  Report Type: Report from Study
  Country: US (occurrence: US)
  Receive Date: 20171030
  Receipt Date: 20171030
  Transmission Date: 20180321
  Serious: No
  Sender: FDA-Public Use
  Company Number: US-IPSEN BIOPHARMACEUTICALS, INC.-2017-01080

PATIENT
  Sex: Male
  Weight: 21.9 kg

DRUGS (5)
  1. INCRELEX [Suspect]
     Active Substance: MECASERMIN
     Indication: BODY HEIGHT BELOW NORMAL
     Dosage: 0.26 ML
     Route: 058
  2. INCRELEX [Suspect]
     Active Substance: MECASERMIN
     Indication: OFF LABEL USE
     Dosage: 0.08 ML
     Route: 058
     Dates: start: 20161221
  3. INCRELEX [Suspect]
     Active Substance: MECASERMIN
     Dosage: 0.17 ML
     Route: 058
  4. INCRELEX [Suspect]
     Active Substance: MECASERMIN
     Dosage: 0.17 ML
     Route: 058
  5. METHYLPHENIDATE. [Concomitant]
     Active Substance: METHYLPHENIDATE
     Route: 048

REACTIONS (2)
  - Headache [Unknown]
  - Off label use [Unknown]
